FAERS Safety Report 26103222 (Version 1)
Quarter: 2025Q4

REPORT INFORMATION
  Report Type: Spontaneous
  Country: US (occurrence: US)
  Receive Date: 20251129
  Receipt Date: 20251129
  Transmission Date: 20260119
  Serious: No
  Sender: IBSA INSTITUT BIOCHIMIQUE
  Company Number: US-IBSA PHARMA INC.-2025IBS000371

PATIENT

DRUGS (1)
  1. LEVOTHYROXINE SODIUM [Suspect]
     Active Substance: LEVOTHYROXINE SODIUM
     Indication: Hypothyroidism
     Dosage: UNK, QD

REACTIONS (14)
  - Madarosis [Unknown]
  - Malaise [Unknown]
  - Blood sodium decreased [Unknown]
  - Apathy [Unknown]
  - Decreased appetite [Unknown]
  - Mobility decreased [Unknown]
  - Weight increased [Unknown]
  - Musculoskeletal discomfort [Unknown]
  - Alopecia [Unknown]
  - Fatigue [Unknown]
  - Insomnia [Unknown]
  - Product size issue [Unknown]
  - Product shape issue [Unknown]
  - Wrong technique in product usage process [Unknown]

NARRATIVE: CASE EVENT DATE: 20240101
